FAERS Safety Report 5008060-4 (Version None)
Quarter: 2006Q2

REPORT INFORMATION
  Report Type: 
  Country: None (occurrence: None)
  Receive Date: 20060404
  Receipt Date: 20050608
  Transmission Date: 20061013
  Serious: Yes (Other)
  Sender: FDA-Public Use
  Company Number: 2005087338

PATIENT
  Age: 22 Year
  Sex: Male

DRUGS (3)
  1. GEODON [Suspect]
  2. VALPROIC ACID [Concomitant]
  3. KEPPRA [Concomitant]

REACTIONS (3)
  - CONVULSION [None]
  - DYSKINESIA [None]
  - MUSCLE RIGIDITY [None]
